FAERS Safety Report 5321992-2 (Version None)
Quarter: 2007Q2

REPORT INFORMATION
  Report Type: 
  Country: None (occurrence: None)
  Receive Date: 20070511
  Receipt Date: 20070501
  Transmission Date: 20071010
  Serious: Yes (Other)
  Sender: FDA-Public Use
  Company Number: PHFR2007GB01500

PATIENT
  Age: 75 Year
  Sex: Male
  Weight: 103 kg

DRUGS (2)
  1. CAPTOPRIL [Concomitant]
     Indication: HYPERTENSION
     Dosage: 5 G, TID
     Route: 065
     Dates: start: 20000101
  2. DICLOFENAC SODIUM [Suspect]
     Indication: ARTHRITIS
     Dosage: 50MG / DAY
     Route: 048
     Dates: start: 20070323, end: 20070325

REACTIONS (1)
  - HAEMORRHAGE [None]
